FAERS Safety Report 24578338 (Version 3)
Quarter: 2025Q2

REPORT INFORMATION
  Report Type: Report from Study
  Country: CN (occurrence: CN)
  Receive Date: 20241105
  Receipt Date: 20250623
  Transmission Date: 20250716
  Serious: Yes (Hospitalization, Other)
  Sender: NOVO NORDISK
  Company Number: CN-NOVOPROD-1306082

PATIENT
  Sex: Male

DRUGS (8)
  1. NOVOEIGHT [Suspect]
     Active Substance: ANTIHEMOPHILIC FACTOR, HUMAN RECOMBINANT
     Indication: Factor VIII deficiency
  2. NOVOEIGHT [Suspect]
     Active Substance: ANTIHEMOPHILIC FACTOR, HUMAN RECOMBINANT
  3. NOVOEIGHT [Suspect]
     Active Substance: ANTIHEMOPHILIC FACTOR, HUMAN RECOMBINANT
     Dosage: 200 IU, QD
     Route: 042
     Dates: start: 20250313
  4. NOVOEIGHT [Suspect]
     Active Substance: ANTIHEMOPHILIC FACTOR, HUMAN RECOMBINANT
     Dosage: 4000 IU, BID
     Route: 042
     Dates: start: 20250519, end: 20250522
  5. NOVOEIGHT [Suspect]
     Active Substance: ANTIHEMOPHILIC FACTOR, HUMAN RECOMBINANT
     Dosage: 4000 IU, BID
     Route: 042
     Dates: start: 20250514
  6. NOVOEIGHT [Suspect]
     Active Substance: ANTIHEMOPHILIC FACTOR, HUMAN RECOMBINANT
     Dosage: 4000 IU, BID
     Route: 042
     Dates: start: 20250515
  7. NOVOEIGHT [Suspect]
     Active Substance: ANTIHEMOPHILIC FACTOR, HUMAN RECOMBINANT
     Dosage: 3000 IU, BID
     Route: 042
     Dates: start: 20250518
  8. NOVOEIGHT [Suspect]
     Active Substance: ANTIHEMOPHILIC FACTOR, HUMAN RECOMBINANT
     Dosage: 4000 IU, BID
     Route: 042
     Dates: start: 20250318

REACTIONS (9)
  - Haemarthrosis [Recovered/Resolved]
  - Factor VIII inhibition [Recovering/Resolving]
  - Haemarthrosis [Unknown]
  - Haemophilic arthropathy [Recovering/Resolving]
  - Factor VIII inhibition [Unknown]
  - Haemophilic arthropathy [Unknown]
  - Haemarthrosis [Unknown]
  - Elbow deformity [Unknown]
  - Knee deformity [Unknown]
